FAERS Safety Report 7536387-0 (Version None)
Quarter: 2011Q2

REPORT INFORMATION
  Report Type: 
  Country: None (occurrence: None)
  Receive Date: 20110524
  Receipt Date: 20110317
  Transmission Date: 20111010
  Serious: Yes (Hospitalization, Other)
  Sender: FDA-Public Use
  Company Number: 029544

PATIENT
  Sex: Female
  Weight: 47.1741 kg

DRUGS (5)
  1. ASPIRIN [Concomitant]
  2. PREDNISONE [Concomitant]
  3. COUMADIN [Concomitant]
  4. CIMZIA [Suspect]
     Indication: RHEUMATOID ARTHRITIS
     Dosage: (1 SHOT SUBCUTANEOUS)
     Route: 058
     Dates: start: 20100901
  5. PLAVIX [Concomitant]

REACTIONS (5)
  - UVEITIS [None]
  - ARTHRALGIA [None]
  - DRUG INEFFECTIVE [None]
  - MYOCARDIAL INFARCTION [None]
  - MUSCLE SPASMS [None]
